FAERS Safety Report 10332336 (Version 1)
Quarter: 2014Q3

REPORT INFORMATION
  Report Type: Spontaneous
  Country: JP (occurrence: None)
  Receive Date: 20140718
  Receipt Date: 20140718
  Transmission Date: 20150326
  Serious: Yes (Hospitalization)
  Sender: FDA-Public Use
  Company Number: 2014HINLIT0482

PATIENT
  Age: 54 Year
  Sex: Female

DRUGS (1)
  1. HYDROXYZINE (HYDROXYZINE) UNKNOWN [Suspect]
     Active Substance: HYDROXYZINE HYDROCHLORIDE
     Indication: RASH
     Dosage: UNKNOWN

REACTIONS (4)
  - Blood pressure increased [None]
  - Subarachnoid haemorrhage [None]
  - Cerebral ischaemia [None]
  - Cerebral vasoconstriction [None]
